FAERS Safety Report 4393216-4 (Version None)
Quarter: 2004Q3

REPORT INFORMATION
  Report Type: 
  Country: None (occurrence: None)
  Receive Date: 20040701
  Receipt Date: 20040223
  Transmission Date: 20050211
  Serious: Yes (Death)
  Sender: FDA-Public Use
  Company Number: 205111

PATIENT
  Age: 59 Year
  Sex: Female

DRUGS (1)
  1. HERCEPTIN [Suspect]
     Indication: BREAST CANCER METASTATIC
     Dosage: 250 MG, IV DRIP
     Route: 041
     Dates: start: 20040220, end: 20040220

REACTIONS (2)
  - ASTHMA [None]
  - RESPIRATORY FAILURE [None]
